FAERS Safety Report 5490266-1 (Version None)
Quarter: 2007Q4

REPORT INFORMATION
  Report Type: 
  Country: None (occurrence: None)
  Receive Date: 20071015
  Receipt Date: 20070630
  Transmission Date: 20080405
  Serious: No
  Sender: FDA-Public Use
  Company Number: 2007SP002425

PATIENT
  Age: 32 Year
  Sex: Female

DRUGS (4)
  1. LUNESTA [Suspect]
     Indication: INSOMNIA
     Dosage: 3 MG; ORAL
     Route: 048
     Dates: start: 20070301, end: 20070601
  2. SEROQUEL [Concomitant]
  3. KLONOPIN [Concomitant]
  4. ANTI-SMOKING AGENTS [Concomitant]

REACTIONS (2)
  - DYSGEUSIA [None]
  - INITIAL INSOMNIA [None]
